FAERS Safety Report 6095938-6 (Version None)
Quarter: 2009Q1

REPORT INFORMATION
  Report Type: 
  Country: None (occurrence: None)
  Receive Date: 20090227
  Receipt Date: 20080828
  Transmission Date: 20090719
  Serious: Yes (Other)
  Sender: FDA-Public Use
  Company Number: A0738485A

PATIENT
  Age: 50 Year
  Sex: Male

DRUGS (8)
  1. LAMICTAL [Suspect]
     Dosage: 150MG PER DAY
     Route: 048
     Dates: start: 20080701
  2. SEROQUEL [Concomitant]
     Dates: start: 20080401, end: 20080617
  3. FLUOXETINE [Concomitant]
  4. KLONOPIN [Concomitant]
  5. DESIPRAMINE HCL [Concomitant]
  6. CYMBALTA [Concomitant]
  7. RISPERDAL [Concomitant]
  8. PRISTIQ [Concomitant]

REACTIONS (5)
  - ILL-DEFINED DISORDER [None]
  - STEVENS-JOHNSON SYNDROME [None]
  - STOMATITIS [None]
  - SWOLLEN TONGUE [None]
  - TONGUE ULCERATION [None]
